FAERS Safety Report 24686086 (Version 1)
Quarter: 2024Q4

REPORT INFORMATION
  Report Type: Spontaneous
  Country: US (occurrence: US)
  Receive Date: 20241202
  Receipt Date: 20241202
  Transmission Date: 20250115
  Serious: No
  Sender: Kenvue
  Company Number: US-KENVUE-20241100224

PATIENT
  Sex: Female

DRUGS (1)
  1. MENS ROGAINE EXTRA STRENGTH [Suspect]
     Active Substance: MINOXIDIL
     Indication: Alopecia
     Dosage: 2-APPLICATION OF THE DROPPER ONCE DAILY - SOMETIMES A LITTLE MORE FREQUENTLY - AFTER SHAMPOOING
     Route: 061

REACTIONS (5)
  - Product use in unapproved indication [Unknown]
  - Product use issue [Unknown]
  - Intentional product misuse [Unknown]
  - Therapeutic response unexpected [Unknown]
  - Overdose [Unknown]
